FAERS Safety Report 5572148-X (Version None)
Quarter: 2007Q4

REPORT INFORMATION
  Report Type: 
  Country: None (occurrence: None)
  Receive Date: 20071221
  Receipt Date: 20071210
  Transmission Date: 20080405
  Serious: Yes (Other)
  Sender: FDA-Public Use
  Company Number: JP-PFIZER INC-2007089280

PATIENT
  Sex: Female
  Weight: 70.9 kg

DRUGS (1)
  1. GABAPEN [Suspect]
     Indication: EPILEPSY
     Route: 048

REACTIONS (4)
  - BLOOD CHOLESTEROL INCREASED [None]
  - BLOOD CREATINE PHOSPHOKINASE INCREASED [None]
  - FRACTURE [None]
  - HYPOAESTHESIA [None]
